FAERS Safety Report 25652317 (Version 1)
Quarter: 2025Q3

REPORT INFORMATION
  Report Type: Report from Study
  Country: US (occurrence: US)
  Receive Date: 20250807
  Receipt Date: 20250807
  Transmission Date: 20251021
  Serious: Yes (Other)
  Sender: ALEXION PHARMACEUTICALS
  Company Number: US-AstraZeneca-CH-00924873A

PATIENT
  Sex: Male

DRUGS (1)
  1. DAPAGLIFLOZIN [Suspect]
     Active Substance: DAPAGLIFLOZIN
     Route: 065

REACTIONS (7)
  - Atrial fibrillation [Unknown]
  - Diabetes mellitus [Unknown]
  - Skin ulcer [Unknown]
  - Deep vein thrombosis [Unknown]
  - Retinopathy [Unknown]
  - Gastrooesophageal reflux disease [Unknown]
  - Pancreatic failure [Unknown]
